FAERS Safety Report 5815217-9 (Version None)
Quarter: 2008Q3

REPORT INFORMATION
  Report Type: 
  Country: None (occurrence: None)
  Receive Date: 20080718
  Receipt Date: 20080714
  Transmission Date: 20090109
  Serious: Yes (Other)
  Sender: FDA-Public Use
  Company Number: DE-GENENTECH-261886

PATIENT

DRUGS (6)
  1. MABTHERA [Suspect]
     Indication: CHRONIC LYMPHOCYTIC LEUKAEMIA
     Dosage: 50 MG/M2, UNK
  2. MABTHERA [Suspect]
     Dosage: 150 MG/M2, UNK
  3. MABTHERA [Suspect]
     Dosage: 175 MG/M2, UNK
  4. MABTHERA [Suspect]
     Dosage: 375 MG/M2, UNK
  5. FLUDARABINE PHOSPHATE [Suspect]
     Indication: CHRONIC LYMPHOCYTIC LEUKAEMIA
     Dosage: 25 MG/M2, DAYS 1-5/Q28D
     Route: 042
  6. ACETAMINOPHEN [Concomitant]
     Indication: PREMEDICATION

REACTIONS (1)
  - THROMBOSIS [None]
